FAERS Safety Report 17801196 (Version 1)
Quarter: 2020Q2

REPORT INFORMATION
  Report Type: Spontaneous
  Country: US (occurrence: US)
  Receive Date: 20200519
  Receipt Date: 20200519
  Transmission Date: 20200714
  Serious: Yes (Life-Threatening, Hospitalization, Other)
  Sender: FDA-Public Use
  Company Number: US-DRREDDYS-USA/USA/20/0122993

PATIENT
  Age: 38 Year
  Sex: Female

DRUGS (3)
  1. RISPERIDONE. [Suspect]
     Active Substance: RISPERIDONE
     Indication: SCHIZOPHRENIA
     Route: 065
  2. RISPERIDONE. [Suspect]
     Active Substance: RISPERIDONE
     Indication: BIPOLAR DISORDER
  3. NAPROXEN. [Concomitant]
     Active Substance: NAPROXEN
     Indication: PRODUCT USED FOR UNKNOWN INDICATION

REACTIONS (8)
  - Hypereosinophilic syndrome [Recovering/Resolving]
  - Cardiac ventricular thrombosis [Not Recovered/Not Resolved]
  - Sinus tachycardia [Unknown]
  - Thrombocytopenia [Unknown]
  - Tricuspid valve incompetence [Unknown]
  - Right ventricular dilatation [Unknown]
  - Endocarditis fibroplastica [Recovering/Resolving]
  - Rash maculo-papular [Recovering/Resolving]
